FAERS Safety Report 6349505-7 (Version None)
Quarter: 2009Q3

REPORT INFORMATION
  Report Type: 
  Country: None (occurrence: None)
  Receive Date: 20090911
  Receipt Date: 20090901
  Transmission Date: 20100115
  Serious: Yes (Life-Threatening)
  Sender: FDA-Public Use
  Company Number: JP-JNJFOC-20090600657

PATIENT
  Sex: Male
  Weight: 48 kg

DRUGS (4)
  1. REMICADE [Suspect]
     Dosage: 7TH INFUSION
     Route: 042
  2. REMICADE [Suspect]
     Indication: CROHN'S DISEASE
     Route: 042
  3. IMURAN [Suspect]
     Indication: CROHN'S DISEASE
     Route: 048
  4. PREDNISOLONE [Suspect]
     Indication: CROHN'S DISEASE

REACTIONS (1)
  - HEPATIC NEOPLASM MALIGNANT [None]
